FAERS Safety Report 11616241 (Version 4)
Quarter: 2015Q4

REPORT INFORMATION
  Report Type: Report from Study
  Country: DE (occurrence: DE)
  Receive Date: 20151009
  Receipt Date: 20151230
  Transmission Date: 20160304
  Serious: Yes (Hospitalization, Disabling)
  Sender: FDA-Public Use
  Company Number: DE-BAYER-2015-433141

PATIENT
  Age: 77 Year
  Sex: Male
  Weight: 75 kg

DRUGS (9)
  1. RADIUM-223 DICHLORIDE [Suspect]
     Active Substance: RADIUM RA-223 DICHLORIDE
     Indication: PROSTATE CANCER METASTATIC
     Dosage: 3.9 MBQ, ONCE
     Route: 042
     Dates: start: 20150504, end: 20150504
  2. LYRICA [Concomitant]
     Active Substance: PREGABALIN
     Dosage: TOTAL DAILY DOSE 50 MG
     Dates: start: 20150515
  3. PREDNISOLON [Concomitant]
     Active Substance: PREDNISOLONE
     Dosage: TOTAL DAILY DOSE 5 MG
     Dates: start: 20150611, end: 2015
  4. RADIUM-223 DICHLORIDE [Suspect]
     Active Substance: RADIUM RA-223 DICHLORIDE
     Indication: METASTASES TO BONE
     Dosage: 3.9 MBQ, ONCE
     Route: 042
     Dates: start: 20150601, end: 20150601
  5. NOVAMIN [Concomitant]
     Active Substance: PROCHLORPERAZINE MALEATE
     Dosage: 500 MG/D
     Dates: start: 2014
  6. ZOMETA [Concomitant]
     Active Substance: ZOLEDRONIC ACID
     Dosage: UNK
     Dates: start: 2007
  7. DOMPERIDON [Concomitant]
     Active Substance: DOMPERIDONE
     Dosage: UNK
     Dates: start: 20150611, end: 2015
  8. RADIUM-223 DICHLORIDE [Suspect]
     Active Substance: RADIUM RA-223 DICHLORIDE
     Indication: PROSTATE CANCER METASTATIC
     Dosage: 3.6 MBQ, ONCE
     Route: 042
     Dates: start: 20150629, end: 20150629
  9. FENTANYL. [Concomitant]
     Active Substance: FENTANYL
     Dosage: 25 ?G/H, CONT
     Route: 061
     Dates: start: 20150611

REACTIONS (1)
  - Pain [Not Recovered/Not Resolved]

NARRATIVE: CASE EVENT DATE: 20150630
